FAERS Safety Report 4980083-0 (Version None)
Quarter: 2006Q2

REPORT INFORMATION
  Report Type: 
  Country: None (occurrence: None)
  Receive Date: 20060421
  Receipt Date: 20051222
  Transmission Date: 20061013
  Serious: Yes (Death)
  Sender: FDA-Public Use
  Company Number: US-MERCK-0512USA03654

PATIENT
  Age: 96 Year
  Sex: Female

DRUGS (1)
  1. VIOXX [Suspect]
     Route: 048
     Dates: start: 20000101, end: 20031117

REACTIONS (8)
  - ABDOMINAL DISCOMFORT [None]
  - ACUTE CORONARY SYNDROME [None]
  - CONCUSSION [None]
  - DEATH [None]
  - DEHYDRATION [None]
  - GASTROINTESTINAL HAEMORRHAGE [None]
  - HYPOVOLAEMIA [None]
  - PELVIC FRACTURE [None]
